FAERS Safety Report 7169627-0 (Version None)
Quarter: 2010Q4

REPORT INFORMATION
  Report Type: 
  Country: None (occurrence: None)
  Receive Date: 20101217
  Receipt Date: 20101206
  Transmission Date: 20110411
  Serious: Yes (Other)
  Sender: FDA-Public Use
  Company Number: CA-JNJFOC-20101202940

PATIENT
  Sex: Female
  Weight: 47 kg

DRUGS (12)
  1. REMICADE [Suspect]
     Indication: CROHN'S DISEASE
     Route: 042
  2. MIRTAZAPINE [Concomitant]
  3. PENTASA [Concomitant]
  4. METHOTREXATE [Concomitant]
     Route: 065
  5. METHOTRIMEPRAZINE [Concomitant]
     Dosage: ONE OR TWO PRN
  6. SALBUTAMOL [Concomitant]
     Dosage: 2 PUFFS PRN
     Route: 055
  7. MIRAPEX [Concomitant]
  8. ALPRAZOLAM [Concomitant]
     Dosage: PRN
  9. ALENDRONATE [Concomitant]
     Route: 065
  10. ADVAIR [Concomitant]
     Dosage: 2 PUFFS BID
     Route: 055
  11. FOLIC ACID [Concomitant]
  12. QUETIAPINE FUMARATE [Concomitant]
     Dosage: PRN
     Route: 065

REACTIONS (2)
  - FALL [None]
  - FOOT FRACTURE [None]
